FAERS Safety Report 4404543-6 (Version None)
Quarter: 2004Q3

REPORT INFORMATION
  Report Type: 
  Country: None (occurrence: None)
  Receive Date: 20040720
  Receipt Date: 20040708
  Transmission Date: 20050211
  Serious: Yes (Other)
  Sender: FDA-Public Use
  Company Number: 200419100BWH

PATIENT
  Age: 59 Year
  Sex: Male
  Weight: 70.3075 kg

DRUGS (6)
  1. CIPRO XR [Suspect]
     Indication: PROSTATE INFECTION
     Dosage: 1000 MG, TOTAL DAILY, ORAL
     Route: 048
     Dates: start: 20031225
  2. CIPRO [Suspect]
     Indication: PROSTATE INFECTION
     Dosage: 1000 MG TOTAL DAILY, ORAL
     Route: 048
  3. ATENOLOL [Concomitant]
  4. B12 [Concomitant]
  5. FOLIC ACID [Concomitant]
  6. MULTI-VITAMIN [Concomitant]

REACTIONS (3)
  - ARTHRALGIA [None]
  - JOINT STIFFNESS [None]
  - JOINT SWELLING [None]
